FAERS Safety Report 16421864 (Version 2)
Quarter: 2019Q3

REPORT INFORMATION
  Report Type: Spontaneous
  Country: US (occurrence: US)
  Receive Date: 20190612
  Receipt Date: 20190716
  Transmission Date: 20191004
  Serious: Yes (Other)
  Sender: FDA-Public Use
  Company Number: US-PFIZER INC-2019250363

PATIENT
  Age: 47 Year
  Sex: Female

DRUGS (5)
  1. TRAMADOL. [Concomitant]
     Active Substance: TRAMADOL
     Dosage: 100 MG, 2X/DAY (2 TABS IN AM, 2 TAB IN PM.)
  2. GLUCOTROL [Concomitant]
     Active Substance: GLIPIZIDE
     Dosage: UNK
  3. FLEXERIL [CEFIXIME] [Concomitant]
     Active Substance: CEFIXIME
  4. GABAPENTIN. [Suspect]
     Active Substance: GABAPENTIN
     Indication: INTERCOSTAL NEURALGIA
     Dosage: 200 MG, 2X/DAY
     Route: 048
     Dates: start: 20160401, end: 20180214
  5. LIDODERM [Concomitant]
     Active Substance: LIDOCAINE
     Dosage: 1 DF, DAILY

REACTIONS (5)
  - Product use in unapproved indication [Unknown]
  - Suicidal ideation [Recovering/Resolving]
  - Drug hypersensitivity [Unknown]
  - Depression [Unknown]
  - Off label use [Unknown]

NARRATIVE: CASE EVENT DATE: 201702
